FAERS Safety Report 4743087-9 (Version None)
Quarter: 2005Q3

REPORT INFORMATION
  Report Type: 
  Country: None (occurrence: None)
  Receive Date: 20050809
  Receipt Date: 20050725
  Transmission Date: 20060218
  Serious: Yes (Hospitalization)
  Sender: FDA-Public Use
  Company Number: PHEH2005US08090

PATIENT
  Age: 80 Year
  Sex: Male

DRUGS (13)
  1. VISUDYNE [Suspect]
     Indication: MACULAR DEGENERATION
     Dosage: 5.7 ML DAILY IV
     Route: 042
     Dates: start: 20050712, end: 20050712
  2. THEOPHYLLINE [Concomitant]
  3. VERAPAMIL [Concomitant]
  4. MYCARDIS [Concomitant]
  5. OMEPRAZOLE [Concomitant]
  6. GUAIFENESIN [Concomitant]
  7. ZOCOR [Concomitant]
  8. FLUNISOLIDE [Concomitant]
  9. FORADIL [Concomitant]
  10. ALBUTEROL [Concomitant]
  11. DUONEB [Concomitant]
  12. SALSALATE [Concomitant]
  13. PRESERVISION [Concomitant]

REACTIONS (8)
  - BACK PAIN [None]
  - BLOOD PRESSURE FLUCTUATION [None]
  - CHEST PAIN [None]
  - DIZZINESS [None]
  - ENZYME ABNORMALITY [None]
  - INFUSION RELATED REACTION [None]
  - MYOCARDIAL INFARCTION [None]
  - PAIN IN EXTREMITY [None]
